FAERS Safety Report 8977732 (Version 1)
Quarter: 2012Q4

REPORT INFORMATION
  Report Type: 
  Country: GR (occurrence: GR)
  Receive Date: 20121220
  Receipt Date: 20121220
  Transmission Date: 20130627
  Serious: Yes (Hospitalization)
  Sender: FDA-Public Use
  Company Number: GR-GILEAD-2012-0066523

PATIENT
  Sex: Female

DRUGS (1)
  1. AMBRISENTAN [Suspect]
     Indication: PULMONARY HYPERTENSION
     Dosage: 5MG Per day
     Route: 048
     Dates: start: 20120927

REACTIONS (5)
  - Hypoxia [Unknown]
  - Respiratory tract infection [Unknown]
  - Pyrexia [Unknown]
  - Anaemia [Unknown]
  - Haematocrit decreased [Recovering/Resolving]
